FAERS Safety Report 6544298-2 (Version None)
Quarter: 2010Q1

REPORT INFORMATION
  Report Type: 
  Country: None (occurrence: None)
  Receive Date: 20100120
  Receipt Date: 20100111
  Transmission Date: 20100710
  Serious: Yes (Other)
  Sender: FDA-Public Use
  Company Number: TR-ELI_LILLY_AND_COMPANY-TR201001001987

PATIENT
  Age: 15 Year
  Sex: Female

DRUGS (1)
  1. PROZAC [Suspect]
     Indication: MAJOR DEPRESSION
     Dosage: 20 MG, DAILY (1/D)

REACTIONS (3)
  - BRUXISM [None]
  - JOINT STIFFNESS [None]
  - PAIN IN JAW [None]
